FAERS Safety Report 13014463 (Version 1)
Quarter: 2016Q4

REPORT INFORMATION
  Report Type: Report from Study
  Country: CA (occurrence: CA)
  Receive Date: 20161209
  Receipt Date: 20161209
  Transmission Date: 20170207
  Serious: Yes (Death, Life-Threatening, Hospitalization)
  Sender: FDA-Public Use
  Company Number: CA-HLSUS-2016-CA-000413

PATIENT
  Age: 64 Year
  Sex: Male
  Weight: 78 kg

DRUGS (2)
  1. CLOZARIL [Suspect]
     Active Substance: CLOZAPINE
     Indication: SCHIZOPHRENIA
     Dosage: 450 MG
     Route: 048
  2. LAMICTAL [Concomitant]
     Active Substance: LAMOTRIGINE
     Dosage: 125 MG
     Route: 048

REACTIONS (11)
  - Acute kidney injury [Unknown]
  - Chest pain [Unknown]
  - Cardiogenic shock [Fatal]
  - Liver function test increased [Unknown]
  - Ejection fraction abnormal [Unknown]
  - Pneumonia aspiration [Not Recovered/Not Resolved]
  - Loss of consciousness [Not Recovered/Not Resolved]
  - Cardiac valve vegetation [Not Recovered/Not Resolved]
  - Cardiomyopathy [Unknown]
  - Dyspnoea [Unknown]
  - Hepatitis [Not Recovered/Not Resolved]

NARRATIVE: CASE EVENT DATE: 201509
